FAERS Safety Report 24270946 (Version 1)
Quarter: 2024Q3

REPORT INFORMATION
  Report Type: Spontaneous
  Country: US (occurrence: US)
  Receive Date: 20240831
  Receipt Date: 20240831
  Transmission Date: 20241017
  Serious: Yes (Death, Life-Threatening, Hospitalization, Other)
  Sender: AMGEN
  Company Number: US-AMGEN-USASP2024170318

PATIENT

DRUGS (3)
  1. PREDNISONE [Suspect]
     Active Substance: PREDNISONE
     Indication: Asthma
     Dosage: GREATER OR EQUAL TO 5 MG DAILY DOSE, QD (FOR A DURATION OF 30 DAYS OR MORE)
     Route: 065
  2. PREDNISONE [Suspect]
     Active Substance: PREDNISONE
     Indication: Rheumatic disorder
  3. PREDNISONE [Suspect]
     Active Substance: PREDNISONE
     Indication: Inflammatory bowel disease

REACTIONS (24)
  - Death [Fatal]
  - Unevaluable event [Unknown]
  - COVID-19 [Unknown]
  - Arrhythmia [Unknown]
  - Acute respiratory distress syndrome [Unknown]
  - Myocardial injury [Unknown]
  - Urinary tract infection [Unknown]
  - Acute kidney injury [Unknown]
  - Hepatic cirrhosis [Unknown]
  - Hyperthermia [Unknown]
  - Cough [Unknown]
  - Dyspnoea [Unknown]
  - Hepatic steatosis [Unknown]
  - Respiratory tract infection [Unknown]
  - Liver disorder [Unknown]
  - Platelet count decreased [Unknown]
  - Blood sodium decreased [Unknown]
  - Blood albumin decreased [Unknown]
  - Blood bilirubin increased [Unknown]
  - Aspartate aminotransferase increased [Unknown]
  - Alanine aminotransferase increased [Unknown]
  - Blood alkaline phosphatase increased [Unknown]
  - Prothrombin time ratio increased [Unknown]
  - Procalcitonin increased [Unknown]
